FAERS Safety Report 6779118-4 (Version None)
Quarter: 2010Q2

REPORT INFORMATION
  Report Type: 
  Country: None (occurrence: None)
  Receive Date: 20100618
  Receipt Date: 20100607
  Transmission Date: 20101027
  Serious: Yes (Other)
  Sender: FDA-Public Use
  Company Number: JP-BRISTOL-MYERS SQUIBB COMPANY-15138209

PATIENT
  Age: 39 Year
  Sex: Male

DRUGS (4)
  1. BLEOMYCIN SULFATE [Suspect]
     Indication: HODGKIN'S DISEASE
     Dosage: AT MONTHLY INTERVALS PERIOD OF 3 MONTHS.
  2. ADRIAMYCIN PFS [Suspect]
     Indication: HODGKIN'S DISEASE
     Dosage: AT MONTHLY INTERVALS PERIOD OF 3 MONTHS.
  3. VINBLASTINE SULFATE [Suspect]
     Indication: HODGKIN'S DISEASE
     Dosage: AT MONTHLY INTERVALS PERIOD OF 3 MONTHS.
  4. DACARBAZINE [Suspect]
     Indication: HODGKIN'S DISEASE
     Dosage: AT MONTHLY INTERVALS PERIOD OF 3 MONTHS.

REACTIONS (1)
  - FRONTOTEMPORAL DEMENTIA [None]
